FAERS Safety Report 6983336-X (Version None)
Quarter: 2010Q3

REPORT INFORMATION
  Report Type: 
  Country: None (occurrence: None)
  Receive Date: 20100914
  Receipt Date: 20100914
  Transmission Date: 20110219
  Serious: Yes (Hospitalization)
  Sender: FDA-Public Use
  Company Number: US-ABBOTT-10P-163-0668394-00

PATIENT
  Sex: Male
  Weight: 120.31 kg

DRUGS (4)
  1. NIASPAN [Suspect]
     Indication: BLOOD CHOLESTEROL INCREASED
     Dosage: EVERY NIGHT
     Dates: start: 20090101, end: 20100829
  2. NIASPAN [Suspect]
     Dates: start: 20100902
  3. ASPIRIN [Concomitant]
     Indication: PRODUCT USED FOR UNKNOWN INDICATION
     Dosage: 1/2 HOURS BEFORE NIASPAN
  4. DETROL LA [Concomitant]
     Indication: URINARY INCONTINENCE

REACTIONS (1)
  - MENTAL DISORDER [None]
